FAERS Safety Report 4767866-7 (Version None)
Quarter: 2005Q3

REPORT INFORMATION
  Report Type: 
  Country: None (occurrence: None)
  Receive Date: 20050912
  Receipt Date: 20050902
  Transmission Date: 20060218
  Serious: Yes (Hospitalization, Other)
  Sender: FDA-Public Use
  Company Number: KII-2005-0018479

PATIENT
  Age: 59 Year
  Sex: Female

DRUGS (2)
  1. OXYCONTIN [Suspect]
     Dosage: SEE TEXT, ORAL
     Route: 048
  2. SSRI [Suspect]
     Dosage: SEE TEXT, ORAL
     Route: 048

REACTIONS (11)
  - AGITATION [None]
  - BLOOD PH DECREASED [None]
  - COMA [None]
  - ELECTROCARDIOGRAM QT CORRECTED INTERVAL PROLONGED [None]
  - HEART RATE INCREASED [None]
  - INTENTIONAL MISUSE [None]
  - MULTIPLE DRUG OVERDOSE [None]
  - PCO2 INCREASED [None]
  - PNEUMONIA ASPIRATION [None]
  - PYREXIA [None]
  - SOMNOLENCE [None]
